FAERS Safety Report 9611536 (Version 2)
Quarter: 2013Q4

REPORT INFORMATION
  Report Type: Spontaneous
  Country: ES (occurrence: ES)
  Receive Date: 20131010
  Receipt Date: 20131010
  Transmission Date: 20140711
  Serious: Yes (Other)
  Sender: FDA-Public Use
  Company Number: ES-ACCORD-019729

PATIENT
  Age: 56 Year
  Sex: Female

DRUGS (2)
  1. PACLITAXEL [Suspect]
     Indication: INVASIVE DUCTAL BREAST CARCINOMA
  2. TRASTUZUMAB [Concomitant]
     Indication: INVASIVE DUCTAL BREAST CARCINOMA

REACTIONS (1)
  - Morphoea [Recovering/Resolving]
